FAERS Safety Report 4521352-8 (Version None)
Quarter: 2004Q4

REPORT INFORMATION
  Report Type: 
  Country: None (occurrence: None)
  Receive Date: 20041029
  Receipt Date: 20040810
  Transmission Date: 20050328
  Serious: No
  Sender: FDA-Public Use
  Company Number: 2004-119272-NL

PATIENT
  Age: 19 Year
  Sex: Female
  Weight: 56.8 kg

DRUGS (7)
  1. NUVARING [Suspect]
     Indication: CONTRACEPTION
     Dosage: 1 DF DAILY VAGINAL
     Route: 067
     Dates: start: 20040101
  2. DICLOXACILLIN [Concomitant]
  3. RITALIN [Concomitant]
  4. EFFEXOR [Concomitant]
  5. GINKO BILOBA [Concomitant]
  6. MULTI-VITAMINS [Concomitant]
  7. VITAMIN E [Concomitant]

REACTIONS (1)
  - METRORRHAGIA [None]
